FAERS Safety Report 11253541 (Version 2)
Quarter: 2016Q2

REPORT INFORMATION
  Report Type: Report from Study
  Country: CA (occurrence: CA)
  Receive Date: 20150709
  Receipt Date: 20160425
  Transmission Date: 20160815
  Serious: Yes (Other)
  Sender: FDA-Public Use
  Company Number: CA-ROCHE-1559485

PATIENT
  Age: 66 Year
  Sex: Female

DRUGS (16)
  1. VENTOLIN [Concomitant]
     Active Substance: ALBUTEROL SULFATE
  2. FLOVENT [Concomitant]
     Active Substance: FLUTICASONE PROPIONATE
  3. LORATADINE. [Concomitant]
     Active Substance: LORATADINE
  4. NAPROXEN. [Concomitant]
     Active Substance: NAPROXEN
     Route: 065
  5. DEXILANT [Concomitant]
     Active Substance: DEXLANSOPRAZOLE
  6. METHOTREXATE [Concomitant]
     Active Substance: METHOTREXATE
  7. NASONEX [Concomitant]
     Active Substance: MOMETASONE FUROATE
  8. TRIAMTERENE AND HYDROCHLOROTHIAZIDE [Concomitant]
     Active Substance: HYDROCHLOROTHIAZIDE\TRIAMTERENE
  9. HYDROVAL CREAM [Concomitant]
  10. VAGIFEM [Concomitant]
     Active Substance: ESTRADIOL
  11. ESTROGEL [Concomitant]
     Active Substance: ESTRADIOL
  12. RITUXAN [Suspect]
     Active Substance: RITUXIMAB
     Indication: RHEUMATOID ARTHRITIS
     Route: 042
     Dates: start: 2013
  13. PREDNISONE. [Concomitant]
     Active Substance: PREDNISONE
  14. ALPRAZOLAM. [Concomitant]
     Active Substance: ALPRAZOLAM
  15. ACETAMINOPHEN. [Concomitant]
     Active Substance: ACETAMINOPHEN
  16. CALCITE D [Concomitant]
     Active Substance: CALCIUM CARBONATE

REACTIONS (6)
  - Bronchitis [Unknown]
  - Drug ineffective [Unknown]
  - Liver disorder [Unknown]
  - Sinusitis [Recovered/Resolved]
  - Cholelithiasis [Unknown]
  - White blood cell count decreased [Not Recovered/Not Resolved]

NARRATIVE: CASE EVENT DATE: 201412
